FAERS Safety Report 5259094-6 (Version None)
Quarter: 2007Q1

REPORT INFORMATION
  Report Type: 
  Country: None (occurrence: None)
  Receive Date: 20070308
  Receipt Date: 20070227
  Transmission Date: 20070707
  Serious: Yes (Death, Other)
  Sender: FDA-Public Use
  Company Number: PFIZER INC-2006095735

PATIENT
  Sex: Male
  Weight: 94.8 kg

DRUGS (16)
  1. LIPITOR [Interacting]
  2. TENORMIN [Interacting]
     Indication: TACHYARRHYTHMIA
     Dosage: DAILY DOSE:100MG
     Route: 048
  3. GLIPIZIDE [Interacting]
     Indication: DIABETES MELLITUS
     Dosage: DAILY DOSE:10MG
     Route: 048
  4. NIASPAN [Interacting]
     Indication: BLOOD CHOLESTEROL INCREASED
     Dosage: DAILY DOSE:1000MG
     Route: 048
     Dates: start: 20060611, end: 20060611
  5. NIASPAN [Interacting]
     Indication: HIGH DENSITY LIPOPROTEIN DECREASED
  6. LORAZEPAM [Interacting]
     Indication: DEPRESSION
     Dosage: DAILY DOSE:2MG
     Route: 048
  7. TRAZODONE HYDROCHLORIDE [Suspect]
     Indication: DEPRESSION
     Dosage: DAILY DOSE:200MG
     Route: 048
  8. EFFEXOR [Concomitant]
     Indication: DEPRESSION
     Dosage: DAILY DOSE:150MG
     Route: 048
  9. LANOXIN [Concomitant]
     Indication: TACHYARRHYTHMIA
     Dosage: DAILY DOSE:.375MG
     Route: 048
  10. GLUCOPHAGE [Concomitant]
     Indication: DIABETES MELLITUS
     Dosage: DAILY DOSE:1000MG
     Route: 048
  11. ACTOS [Concomitant]
     Indication: DIABETES MELLITUS
     Dosage: DAILY DOSE:45MG
     Route: 048
  12. LANTUS [Concomitant]
     Indication: DIABETES MELLITUS
     Dosage: TEXT:70/60
     Route: 058
  13. TRICOR [Concomitant]
     Indication: DYSLIPIDAEMIA
     Dosage: DAILY DOSE:160MG
     Route: 048
  14. WELLBUTRIN [Concomitant]
     Indication: DEPRESSION
     Dosage: DAILY DOSE:300MG
     Route: 048
  15. VITAMIN CAP [Concomitant]
  16. RISPERDAL [Concomitant]
     Dosage: DAILY DOSE:3MG
     Route: 048

REACTIONS (4)
  - DRUG INTERACTION [None]
  - FLUSHING [None]
  - MEDICATION ERROR [None]
  - MYOCARDIAL INFARCTION [None]
